FAERS Safety Report 19710372 (Version 1)
Quarter: 2021Q3

REPORT INFORMATION
  Report Type: Spontaneous
  Country: SA (occurrence: SA)
  Receive Date: 20210817
  Receipt Date: 20210817
  Transmission Date: 20211014
  Serious: Yes (Death, Other)
  Sender: FDA-Public Use
  Company Number: SA-AMGEN-SAUSP2021124164

PATIENT

DRUGS (8)
  1. FILGRASTIM [Suspect]
     Active Substance: FILGRASTIM
     Indication: NEUTROPHIL COUNT ABNORMAL
     Dosage: 5 MICROGRAM/KG
     Route: 058
  2. CYCLOSPORINE. [Concomitant]
     Active Substance: CYCLOSPORINE
     Indication: PROPHYLAXIS
  3. CYCLOPHOSPHAMIDE. [Concomitant]
     Active Substance: CYCLOPHOSPHAMIDE
     Indication: PROPHYLAXIS
     Dosage: 25 MILLIGRAM/KG, QD, (50MG/KG TOTAL)
     Route: 042
  4. BUSULFAN. [Concomitant]
     Active Substance: BUSULFAN
     Indication: MYELOSUPPRESSION
     Route: 042
  5. FLUDARABINE [Concomitant]
     Active Substance: FLUDARABINE PHOSPHATE
     Indication: MYELOSUPPRESSION
  6. ROMIPLOSTIM [Suspect]
     Active Substance: ROMIPLOSTIM
     Indication: DELAYED ENGRAFTMENT
     Route: 065
  7. THIOTEPA. [Concomitant]
     Active Substance: THIOTEPA
     Indication: MYELOSUPPRESSION
     Dosage: 5 MILLIGRAM/KG, (10 MG/KG TOTAL)
     Route: 042
  8. MYCOPHENOLATE MOFETIL. [Concomitant]
     Active Substance: MYCOPHENOLATE MOFETIL
     Indication: PROPHYLAXIS

REACTIONS (15)
  - Mucosal inflammation [Unknown]
  - Neurodegenerative disorder [Unknown]
  - Acute graft versus host disease in liver [Unknown]
  - Transplant failure [Unknown]
  - Death [Fatal]
  - Muscle spasticity [Unknown]
  - Acute graft versus host disease in skin [Unknown]
  - Gene mutation [Unknown]
  - Toxicity to various agents [Unknown]
  - Cytomegalovirus infection [Unknown]
  - Venoocclusive disease [Unknown]
  - Acute graft versus host disease in intestine [Unknown]
  - Seizure [Unknown]
  - Hypercalcaemia [Unknown]
  - Disease progression [Unknown]
